FAERS Safety Report 12388754 (Version 1)
Quarter: 2016Q2

REPORT INFORMATION
  Report Type: Spontaneous
  Country: US (occurrence: US)
  Receive Date: 20160520
  Receipt Date: 20160520
  Transmission Date: 20160815
  Serious: No
  Sender: FDA-Public Use
  Company Number: US-009507513-1604USA017739

PATIENT
  Age: 51 Year
  Sex: Male

DRUGS (8)
  1. TEMODAR [Suspect]
     Active Substance: TEMOZOLOMIDE
     Dosage: 200 MG/M2, QD, THIRD OF ADDITIONAL 4-WEEK CYCLE
     Route: 048
  2. TEMODAR [Suspect]
     Active Substance: TEMOZOLOMIDE
     Indication: ATYPICAL TERATOID/RHABDOID TUMOUR OF CNS
     Dosage: 75 MG/M2, QD, OVER THE PERIOD OF RADIOTHERAPY
     Route: 048
  3. TEMODAR [Suspect]
     Active Substance: TEMOZOLOMIDE
     Dosage: 200 MG/M2, QD, SECOND OF ADDITIONAL 4-WEEK CYCLE
     Route: 048
  4. TEMODAR [Suspect]
     Active Substance: TEMOZOLOMIDE
     Indication: CHEMOTHERAPY
     Dosage: 150 MG/M2, QD, REINITIATED AFTER 1 MONTH
     Route: 048
  5. TEMODAR [Suspect]
     Active Substance: TEMOZOLOMIDE
     Dosage: 200 MG/M2, QD, FIFTH OF ADDITIONAL 4-WEEK CYCLE
     Route: 048
  6. TEMODAR [Suspect]
     Active Substance: TEMOZOLOMIDE
     Dosage: 200 MG/M2, QD, FOURTH OF ADDITIONAL 4-WEEK CYCLE
     Route: 048
  7. LOMUSTINE. [Concomitant]
     Active Substance: LOMUSTINE
     Indication: CHEMOTHERAPY
     Dosage: UNK
  8. TEMODAR [Suspect]
     Active Substance: TEMOZOLOMIDE
     Dosage: 200 MG/M2, QD, FIRST OF ADDITIONAL 4-WEEK CYCLE
     Route: 048

REACTIONS (1)
  - Fatigue [Unknown]
